FAERS Safety Report 20136436 (Version 3)
Quarter: 2021Q4

REPORT INFORMATION
  Report Type: Spontaneous
  Country: CN (occurrence: CN)
  Receive Date: 20211201
  Receipt Date: 20211216
  Transmission Date: 20220303
  Serious: Yes (Hospitalization)
  Sender: FDA-Public Use
  Company Number: CN-BAYER-2021A256407

PATIENT
  Age: 59 Year
  Sex: Male

DRUGS (5)
  1. STIVARGA [Suspect]
     Active Substance: REGORAFENIB
     Indication: Hepatocellular carcinoma
     Dosage: 80 MG, QD
     Route: 048
     Dates: start: 201906, end: 201906
  2. STIVARGA [Suspect]
     Active Substance: REGORAFENIB
     Indication: Hepatocellular carcinoma
     Dosage: 120 MG, QD
     Route: 048
     Dates: start: 201906, end: 202102
  3. NEXAVAR [Suspect]
     Active Substance: SORAFENIB
     Dosage: UNK
     Dates: start: 202102
  4. ENTECAVIR [Concomitant]
     Active Substance: ENTECAVIR
     Indication: Antiviral treatment
     Dosage: 0.5 MG, QD
     Route: 048
     Dates: start: 201811
  5. CAMRELIZUMAB [Concomitant]
     Active Substance: CAMRELIZUMAB
     Dosage: UNK
     Dates: start: 202102

REACTIONS (4)
  - Metastases to lung [None]
  - Hepatocellular carcinoma [Not Recovered/Not Resolved]
  - Pneumonitis [Recovering/Resolving]
  - Off label use [None]

NARRATIVE: CASE EVENT DATE: 20190601
